FAERS Safety Report 5628700-6 (Version None)
Quarter: 2008Q1

REPORT INFORMATION
  Report Type: 
  Country: None (occurrence: None)
  Receive Date: 20080215
  Receipt Date: 20080215
  Transmission Date: 20080703
  Serious: No
  Sender: FDA-Public Use
  Company Number: None

PATIENT
  Age: 45 Year
  Sex: Male
  Weight: 98.4306 kg

DRUGS (3)
  1. OMNISCAN [Suspect]
     Indication: OSTEOMYELITIS
     Dosage: 20 CC 09/30/06 1 IV
     Route: 042
     Dates: start: 20060930
  2. PROHANCE [Suspect]
     Dosage: 20 CC 4/2/07 1 IV
     Route: 042
     Dates: start: 20070402
  3. MAGNEVIST [Suspect]
     Dosage: 20 CC
     Dates: start: 20070423

REACTIONS (1)
  - NEPHROGENIC SYSTEMIC FIBROSIS [None]
